FAERS Safety Report 4811342-X (Version None)
Quarter: 2005Q4

REPORT INFORMATION
  Report Type: 
  Country: None (occurrence: None)
  Receive Date: 20051026
  Receipt Date: 20051026
  Transmission Date: 20060501
  Serious: Yes (Hospitalization)
  Sender: FDA-Public Use
  Company Number: None

PATIENT
  Sex: Female
  Weight: 68.4932 kg

DRUGS (1)
  1. DEPO-PROVERA [Suspect]
     Indication: CONTRACEPTION
     Dosage: 08/02/2005 ONE TIME IV
     Route: 042
     Dates: start: 20050802, end: 20051101

REACTIONS (8)
  - ALOPECIA [None]
  - DEPRESSION [None]
  - FEELING ABNORMAL [None]
  - MENORRHAGIA [None]
  - METRORRHAGIA [None]
  - PHARMACEUTICAL PRODUCT COMPLAINT [None]
  - SELF ESTEEM DECREASED [None]
  - WEIGHT INCREASED [None]
